FAERS Safety Report 6697595-4 (Version None)
Quarter: 2010Q2

REPORT INFORMATION
  Report Type: 
  Country: None (occurrence: None)
  Receive Date: 20100422
  Receipt Date: 20100419
  Transmission Date: 20101027
  Serious: Yes (Hospitalization)
  Sender: FDA-Public Use
  Company Number: ALL1-2010-00839

PATIENT
  Age: 74 Year
  Sex: Female
  Weight: 73.5 kg

DRUGS (6)
  1. FOSRENOL [Suspect]
     Indication: HYPERPHOSPHATAEMIA
     Dosage: 1000 MG WITH EVERY MEAL, ORAL
     Route: 048
     Dates: start: 20090924, end: 20100201
  2. REMINYL /00382001/ (GALANTAMINE) UNKNOWN [Concomitant]
  3. RENAVIT (ASCORBIC ACID, BIOTIN, CALCIUM PANTOTHENATE, FOLIC ACID, NICO [Concomitant]
  4. PROPRANOLOL           /00030001/ (PROPRANOLOL) TABLET [Concomitant]
  5. ZETIA        (EZETIMIBE) TABLET [Concomitant]
  6. LOVAZA             (OMEGA-3 MARINE TRIGLYCERIDES) UNKNOWN [Concomitant]

REACTIONS (6)
  - BLOOD PHOSPHORUS INCREASED [None]
  - COUGH [None]
  - DYSPNOEA [None]
  - HEART RATE IRREGULAR [None]
  - HYPOPHAGIA [None]
  - TREATMENT NONCOMPLIANCE [None]
